FAERS Safety Report 21958811 (Version 1)
Quarter: 2023Q1

REPORT INFORMATION
  Report Type: Spontaneous
  Country: US (occurrence: US)
  Receive Date: 20230206
  Receipt Date: 20230206
  Transmission Date: 20230418
  Serious: No
  Sender: FDA-Public Use
  Company Number: US-AERIE-2021-002530

PATIENT

DRUGS (4)
  1. RHOPRESSA [Suspect]
     Active Substance: NETARSUDIL MESYLATE
     Indication: Glaucoma
     Dosage: 1 GTT, OU, QHS
     Route: 047
     Dates: start: 20211006
  2. BETAXOLOL [Concomitant]
     Active Substance: BETAXOLOL
     Indication: Glaucoma
     Dosage: 1 GTT, OU,QAM
  3. PILOCARPINE [Concomitant]
     Active Substance: PILOCARPINE
     Indication: Glaucoma
     Dosage: 1 GTT, OU, TID
     Route: 047
  4. BRINZOLAMIDE [Concomitant]
     Active Substance: BRINZOLAMIDE
     Indication: Glaucoma
     Dosage: 1 GTT, OU, TID
     Route: 047

REACTIONS (3)
  - Lacrimation increased [Not Recovered/Not Resolved]
  - Conjunctival hyperaemia [Not Recovered/Not Resolved]
  - Eye pruritus [Not Recovered/Not Resolved]

NARRATIVE: CASE EVENT DATE: 20211206
